FAERS Safety Report 5378170-0 (Version None)
Quarter: 2007Q3

REPORT INFORMATION
  Report Type: 
  Country: None (occurrence: None)
  Receive Date: 20070705
  Receipt Date: 20070622
  Transmission Date: 20080115
  Serious: Yes (Hospitalization)
  Sender: FDA-Public Use
  Company Number: JP-JNJFOC-20070306673

PATIENT
  Sex: Female
  Weight: 45 kg

DRUGS (25)
  1. REMICADE [Suspect]
  2. REMICADE [Suspect]
  3. REMICADE [Suspect]
  4. REMICADE [Suspect]
  5. REMICADE [Suspect]
  6. REMICADE [Suspect]
  7. REMICADE [Suspect]
  8. REMICADE [Suspect]
  9. REMICADE [Suspect]
  10. REMICADE [Suspect]
  11. REMICADE [Suspect]
  12. REMICADE [Suspect]
  13. REMICADE [Suspect]
  14. REMICADE [Suspect]
  15. REMICADE [Suspect]
  16. REMICADE [Suspect]
  17. REMICADE [Suspect]
     Indication: RHEUMATOID ARTHRITIS
  18. METHOTREXATE [Suspect]
     Route: 048
  19. METHOTREXATE [Suspect]
     Indication: RHEUMATOID ARTHRITIS
     Route: 048
  20. PREDONINE [Suspect]
     Indication: RHEUMATOID ARTHRITIS
     Route: 048
  21. ONEALFA [Concomitant]
     Indication: OSTEOPOROSIS
     Route: 048
  22. MUCOSTA [Concomitant]
     Indication: GASTRITIS
     Route: 048
  23. ACTONEL [Concomitant]
     Indication: OSTEOPOROSIS
     Route: 048
  24. LOXONIN [Concomitant]
     Route: 048
  25. LOXONIN [Concomitant]
     Indication: RHEUMATOID ARTHRITIS
     Route: 048

REACTIONS (3)
  - MENINGITIS VIRAL [None]
  - PNEUMONIA [None]
  - SPINAL COMPRESSION FRACTURE [None]
